FAERS Safety Report 26109895 (Version 1)
Quarter: 2025Q4

REPORT INFORMATION
  Report Type: Spontaneous
  Country: US (occurrence: US)
  Receive Date: 20251201
  Receipt Date: 20251201
  Transmission Date: 20260118
  Serious: Yes (Hospitalization, Other)
  Sender: PURDUE
  Company Number: US-PURDUE-USA-2025-0322533

PATIENT
  Age: 50 Year
  Sex: Male

DRUGS (1)
  1. DEXTROAMPHETAMINE SACCHARATE, AMPHETAMINE ASPARTATE, DEXTROAMPHETAMINE [Suspect]
     Active Substance: AMPHETAMINE ASPARTATE\AMPHETAMINE SULFATE\DEXTROAMPHETAMINE SACCHARATE\DEXTROAMPHETAMINE SULFATE
     Indication: Product used for unknown indication
     Dosage: UNK
     Route: 048

REACTIONS (11)
  - Cardiac arrest [Recovered/Resolved]
  - Coronary artery disease [Unknown]
  - Cardiogenic shock [Recovered/Resolved]
  - Bradycardia [Recovered/Resolved]
  - Hypoperfusion [Recovered/Resolved]
  - Pneumonitis aspiration [Unknown]
  - Acute kidney injury [Recovered/Resolved]
  - Acute myocardial infarction [Unknown]
  - Hypertransaminasaemia [Recovered/Resolved]
  - Troponin increased [Unknown]
  - Drug abuse [Unknown]
